FAERS Safety Report 4744294-1 (Version None)
Quarter: 2005Q3

REPORT INFORMATION
  Report Type: 
  Country: None (occurrence: None)
  Receive Date: 20050812
  Receipt Date: 20050627
  Transmission Date: 20060218
  Serious: Yes (Life-Threatening, Hospitalization, Other)
  Sender: FDA-Public Use
  Company Number: JP-MERCK-0507USA00256

PATIENT
  Age: 76 Year
  Sex: Male

DRUGS (17)
  1. PEPCID RPD [Suspect]
     Indication: GASTRIC ULCER
     Route: 048
     Dates: end: 20050625
  2. TEGRETOL [Suspect]
     Indication: TRIGEMINAL NEURALGIA
     Route: 048
     Dates: start: 20050613, end: 20050625
  3. HARNAL [Concomitant]
     Indication: BENIGN PROSTATIC HYPERPLASIA
     Route: 048
     Dates: start: 20000601, end: 20050625
  4. HARNAL [Concomitant]
     Route: 065
     Dates: start: 20050702
  5. HARNAL [Concomitant]
     Route: 048
     Dates: start: 20000601, end: 20050625
  6. HARNAL [Concomitant]
     Route: 065
     Dates: start: 20050702
  7. CERNILTON [Concomitant]
     Indication: BENIGN PROSTATIC HYPERPLASIA
     Route: 048
     Dates: start: 20010609, end: 20050625
  8. UBRETID [Concomitant]
     Indication: BENIGN PROSTATIC HYPERPLASIA
     Route: 048
     Dates: start: 20000603, end: 20050625
  9. LOXONIN [Concomitant]
     Indication: TRIGEMINAL NEURALGIA
     Route: 048
     Dates: start: 20050611, end: 20050625
  10. [THERAPY UNSPECIFIED] [Concomitant]
     Route: 048
     Dates: start: 20050621, end: 20050625
  11. TERNELIN [Concomitant]
     Indication: TRIGEMINAL NEURALGIA
     Route: 048
     Dates: start: 20050614, end: 20050625
  12. TAKEPRON [Concomitant]
     Indication: GASTRIC ULCER
     Route: 048
     Dates: end: 20050530
  13. TAKEPRON [Concomitant]
     Route: 065
     Dates: start: 20050702
  14. MUCOSTA [Concomitant]
     Route: 048
     Dates: start: 20050614, end: 20050625
  15. ASPIRIN [Concomitant]
     Indication: CEREBRAL INFARCTION
     Route: 048
     Dates: start: 20050509, end: 20050625
  16. ASPIRIN [Concomitant]
     Route: 048
     Dates: start: 20050702
  17. CEROCRAL [Concomitant]
     Route: 048
     Dates: end: 20050625

REACTIONS (6)
  - CONSTIPATION [None]
  - ECZEMA [None]
  - HEPATIC FUNCTION ABNORMAL [None]
  - PETECHIAE [None]
  - THROMBOCYTOPENIA [None]
  - WHITE BLOOD CELL COUNT DECREASED [None]
